FAERS Safety Report 15387603 (Version 6)
Quarter: 2020Q1

REPORT INFORMATION
  Report Type: Report from Study
  Country: US (occurrence: US)
  Receive Date: 20180914
  Receipt Date: 20200204
  Transmission Date: 20200409
  Serious: Yes (Other)
  Sender: FDA-Public Use
  Company Number: US-ACTELION-A-US2016-139127

PATIENT
  Age: 78 Year
  Sex: Male

DRUGS (14)
  1. UPTRAVI [Suspect]
     Active Substance: SELEXIPAG
     Dosage: 800 MCG, BID
     Route: 048
     Dates: start: 20190827
  2. KLOR-CON [Concomitant]
     Active Substance: POTASSIUM CHLORIDE
  3. UPTRAVI [Suspect]
     Active Substance: SELEXIPAG
     Dosage: 600 MCG, BID
     Route: 048
     Dates: start: 20160609
  4. ADCIRCA [Concomitant]
     Active Substance: TADALAFIL
  5. LUNESTA [Concomitant]
     Active Substance: ESZOPICLONE
  6. ZOCOR [Concomitant]
     Active Substance: SIMVASTATIN
  7. METOPROLOL. [Concomitant]
     Active Substance: METOPROLOL
     Dosage: UNK
     Dates: start: 20170207
  8. UPTRAVI [Suspect]
     Active Substance: SELEXIPAG
     Dosage: 1400 MCG, BID
     Route: 048
  9. UPTRAVI [Suspect]
     Active Substance: SELEXIPAG
     Dosage: 1600 MCG, BID
     Route: 048
  10. CENTRUM SILVER [Concomitant]
     Active Substance: MINERALS\VITAMINS
  11. PROSCAR [Concomitant]
     Active Substance: FINASTERIDE
  12. OPSUMIT [Suspect]
     Active Substance: MACITENTAN
     Indication: PULMONARY ARTERIAL HYPERTENSION
     Dosage: 10 MG, QD
     Route: 048
     Dates: start: 20160630
  13. UPTRAVI [Suspect]
     Active Substance: SELEXIPAG
     Indication: PULMONARY ARTERIAL HYPERTENSION
     Dosage: 1000 MCG, BID
     Route: 048
     Dates: start: 20160603
  14. OMEPRAZOLE. [Concomitant]
     Active Substance: OMEPRAZOLE

REACTIONS (24)
  - Oxygen saturation decreased [Recovered/Resolved with Sequelae]
  - Haematuria [Not Recovered/Not Resolved]
  - Abdominal discomfort [Unknown]
  - Headache [Unknown]
  - Anal incontinence [Unknown]
  - Hepatic lesion [Unknown]
  - Palpitations [Recovered/Resolved]
  - Respiratory disorder [Unknown]
  - Back pain [Unknown]
  - Hypoxia [Recovered/Resolved with Sequelae]
  - Arthralgia [Unknown]
  - Blood bilirubin increased [Unknown]
  - Pain in jaw [Unknown]
  - Mobility decreased [Unknown]
  - Dyspnoea [Not Recovered/Not Resolved]
  - Dyspnoea exertional [Not Recovered/Not Resolved]
  - Hepatic cirrhosis [Unknown]
  - Pain in extremity [Recovering/Resolving]
  - Pancreatic mass [Not Recovered/Not Resolved]
  - Diarrhoea [Recovered/Resolved]
  - Prostate cancer metastatic [Not Recovered/Not Resolved]
  - Weight increased [Recovered/Resolved]
  - Myalgia [Recovered/Resolved]
  - Liver function test abnormal [Unknown]

NARRATIVE: CASE EVENT DATE: 20160815
